FAERS Safety Report 26027197 (Version 1)
Quarter: 2025Q4

REPORT INFORMATION
  Report Type: Spontaneous
  Country: TR (occurrence: TR)
  Receive Date: 20251111
  Receipt Date: 20251111
  Transmission Date: 20260118
  Serious: Yes (Hospitalization)
  Sender: CHEPLAPHARM
  Company Number: TR-CHEPLA-2025012798

PATIENT
  Age: 35 Year
  Sex: Male

DRUGS (10)
  1. CAPECITABINE [Suspect]
     Active Substance: CAPECITABINE
     Indication: Rectal adenocarcinoma
     Dosage: 1,000 MG/M2 ORALLY TWICE DAILY ON DAYS 1-14, REPEATED EVERY 21 DAYS
     Route: 048
     Dates: start: 2023
  2. OXALIPLATIN [Suspect]
     Active Substance: OXALIPLATIN
     Indication: Rectal adenocarcinoma
     Dosage: 130 MG/M? IV ON DAY 1
     Route: 042
     Dates: start: 2023
  3. OCTREOTIDE [Suspect]
     Active Substance: OCTREOTIDE
     Route: 042
     Dates: start: 2023
  4. Granulocyte colony-stimulating factor (G-CSF) [Concomitant]
  5. PIPERACILLIN AND TAZOBACTAM [Concomitant]
     Active Substance: PIPERACILLIN SODIUM\TAZOBACTAM SODIUM
  6. METRONIDAZOLE [Concomitant]
     Active Substance: METRONIDAZOLE
  7. LOPERAMIDE [Concomitant]
     Active Substance: LOPERAMIDE
     Route: 048
  8. LOPERAMIDE [Concomitant]
     Active Substance: LOPERAMIDE
     Route: 042
  9. GLUTAMINE [Concomitant]
     Active Substance: GLUTAMINE
  10. SODIUM CHLORIDE [Concomitant]
     Active Substance: SODIUM CHLORIDE
     Route: 042

REACTIONS (15)
  - Pyrexia [Recovered/Resolved]
  - Stomatitis [Recovered/Resolved]
  - Abdominal pain [Recovered/Resolved]
  - Diarrhoea [Recovered/Resolved]
  - Neutropenia [Recovered/Resolved]
  - Thrombocytopenia [Recovered/Resolved]
  - International normalised ratio increased [Recovered/Resolved]
  - Hyperbilirubinaemia [Recovered/Resolved]
  - Acute kidney injury [Recovered/Resolved]
  - Electrolyte imbalance [Recovered/Resolved]
  - Haemodynamic instability [Recovered/Resolved]
  - Anaemia [Recovered/Resolved]
  - C-reactive protein increased [Recovered/Resolved]
  - Oral herpes [Recovered/Resolved]
  - Megacolon [Recovered/Resolved]

NARRATIVE: CASE EVENT DATE: 20230101
